FAERS Safety Report 22156870 (Version 1)
Quarter: 2023Q1

REPORT INFORMATION
  Report Type: Spontaneous
  Country: IT (occurrence: IT)
  Receive Date: 20230330
  Receipt Date: 20230330
  Transmission Date: 20230417
  Serious: Yes (Other)
  Sender: FDA-Public Use
  Company Number: IT-AMGEN-ITASP2023049874

PATIENT
  Age: 76 Year
  Sex: Female

DRUGS (1)
  1. PROLIA [Suspect]
     Active Substance: DENOSUMAB
     Indication: Product used for unknown indication
     Dosage: 60 MILLIGRAM
     Route: 065

REACTIONS (10)
  - Diabetes mellitus [Unknown]
  - Hypothyroidism [Unknown]
  - Blood creatinine increased [Unknown]
  - Neuralgia [Unknown]
  - Gingival pain [Unknown]
  - Glomerular filtration rate abnormal [Unknown]
  - Asthma [Unknown]
  - Blood cholesterol increased [Unknown]
  - Muscle spasms [Unknown]
  - Insomnia [Unknown]
